FAERS Safety Report 11519490 (Version 1)
Quarter: 2015Q3

REPORT INFORMATION
  Report Type: Spontaneous
  Country: AR (occurrence: AR)
  Receive Date: 20150918
  Receipt Date: 20150918
  Transmission Date: 20151125
  Serious: Yes (Hospitalization, Other)
  Sender: FDA-Public Use
  Company Number: AR-ROCHE-1635166

PATIENT
  Age: 36 Year
  Sex: Female

DRUGS (5)
  1. ACTEMRA [Suspect]
     Active Substance: TOCILIZUMAB
     Indication: RHEUMATOID ARTHRITIS
     Dosage: DOSE UNKNOWN
     Route: 042
     Dates: start: 20140515
  2. IBUPROFEN. [Concomitant]
     Active Substance: IBUPROFEN
  3. MORPHINE [Concomitant]
     Active Substance: MORPHINE
  4. DICLOFENAC [Concomitant]
     Active Substance: DICLOFENAC
  5. TRAMADOL. [Concomitant]
     Active Substance: TRAMADOL

REACTIONS (4)
  - Rotator cuff syndrome [Unknown]
  - White blood cell count increased [Not Recovered/Not Resolved]
  - Cataract [Not Recovered/Not Resolved]
  - Arthritis [Not Recovered/Not Resolved]

NARRATIVE: CASE EVENT DATE: 20150413
